FAERS Safety Report 16338020 (Version 2)
Quarter: 2020Q4

REPORT INFORMATION
  Report Type: Spontaneous
  Country: US (occurrence: US)
  Receive Date: 20190521
  Receipt Date: 20201006
  Transmission Date: 20210113
  Serious: Yes (Other)
  Sender: FDA-Public Use
  Company Number: US-TEVA-2019-US-1054207

PATIENT
  Age: 35 Year
  Sex: Female

DRUGS (1)
  1. AJOVY [Suspect]
     Active Substance: FREMANEZUMAB-VFRM
     Indication: MIGRAINE
     Route: 065

REACTIONS (7)
  - Anxiety [Unknown]
  - Depression [Unknown]
  - Tinnitus [Unknown]
  - Headache [Unknown]
  - Visual impairment [Unknown]
  - Fatigue [Unknown]
  - Panic attack [Unknown]

NARRATIVE: CASE EVENT DATE: 20181203
